FAERS Safety Report 21669689 (Version 1)
Quarter: 2022Q4

REPORT INFORMATION
  Report Type: Report from Study
  Country: EG (occurrence: EG)
  Receive Date: 20221201
  Receipt Date: 20221201
  Transmission Date: 20230113
  Serious: Yes (Hospitalization)
  Sender: FDA-Public Use
  Company Number: EG-AMGEN-EGYSL2022204231

PATIENT
  Age: 41 Year
  Sex: Female

DRUGS (2)
  1. VECTIBIX [Suspect]
     Active Substance: PANITUMUMAB
     Indication: Ovarian epithelial cancer
     Dosage: UNK UNK, Q3WK (EVERY 21 DAYS)
     Route: 065
     Dates: start: 20220921
  2. VECTIBIX [Suspect]
     Active Substance: PANITUMUMAB
     Indication: Off label use

REACTIONS (3)
  - Speech disorder [Not Recovered/Not Resolved]
  - Illness [Not Recovered/Not Resolved]
  - Off label use [Unknown]

NARRATIVE: CASE EVENT DATE: 20220921
